FAERS Safety Report 8213428-9 (Version None)
Quarter: 2012Q1

REPORT INFORMATION
  Report Type: 
  Country: None (occurrence: None)
  Receive Date: 20120315
  Receipt Date: 20120309
  Transmission Date: 20120608
  Serious: Yes (Other)
  Sender: FDA-Public Use
  Company Number: CA-ROCHE-782329

PATIENT
  Sex: Male
  Weight: 93 kg

DRUGS (6)
  1. SLOW-K [Concomitant]
  2. VEMURAFENIB [Suspect]
  3. ZOPICLONE [Concomitant]
  4. VEMURAFENIB [Suspect]
     Indication: MALIGNANT MELANOMA
     Dosage: LAST DOSE PRIOR TO SAE: 05 JAN 2011
     Route: 048
  5. NORVASC [Concomitant]
  6. ENTROPHEN [Concomitant]

REACTIONS (3)
  - BOWEN'S DISEASE [None]
  - METASTASIS [None]
  - SQUAMOUS CELL CARCINOMA OF SKIN [None]
